FAERS Safety Report 6965345-X (Version None)
Quarter: 2010Q3

REPORT INFORMATION
  Report Type: 
  Country: None (occurrence: None)
  Receive Date: 20100903
  Receipt Date: 20100825
  Transmission Date: 20110219
  Serious: Yes (Hospitalization, Other)
  Sender: FDA-Public Use
  Company Number: US-PFIZER INC-2010107915

PATIENT
  Sex: Female

DRUGS (3)
  1. DILANTIN [Suspect]
     Indication: CONVULSION
     Dosage: 400 MG, 2X/DAY
     Route: 048
  2. DILANTIN [Suspect]
     Indication: EPILEPSY
  3. CLONAZEPAM [Concomitant]
     Indication: CONVULSION
     Dosage: UNK

REACTIONS (15)
  - AGITATION [None]
  - BACK PAIN [None]
  - BLOOD CHOLESTEROL INCREASED [None]
  - DEHYDRATION [None]
  - DRUG TOXICITY [None]
  - EXTRASYSTOLES [None]
  - HYPERTENSION [None]
  - MALAISE [None]
  - MENTAL DISORDER [None]
  - PNEUMONIA [None]
  - PULSE ABSENT [None]
  - RENAL FAILURE ACUTE [None]
  - RENAL IMPAIRMENT [None]
  - RHABDOMYOLYSIS [None]
  - SEPTIC SHOCK [None]
